FAERS Safety Report 9531246 (Version 1)
Quarter: 2013Q3

REPORT INFORMATION
  Report Type: Spontaneous
  Country: US (occurrence: None)
  Receive Date: 20130916
  Receipt Date: 20130916
  Transmission Date: 20140515
  Serious: No
  Sender: FDA-Public Use
  Company Number: None

PATIENT
  Age: 52 Year
  Sex: Female
  Weight: 61.24 kg

DRUGS (1)
  1. BACTRIM DS [Suspect]
     Indication: URINARY TRACT INFECTION
     Dosage: 1 PILL
     Route: 048
     Dates: start: 20130901, end: 20130902

REACTIONS (6)
  - Dysgeusia [None]
  - Hypersensitivity [None]
  - Lip ulceration [None]
  - Pharyngeal ulceration [None]
  - Oral pain [None]
  - Eating disorder [None]
